FAERS Safety Report 8920723 (Version 1)
Quarter: 2012Q4

REPORT INFORMATION
  Report Type: 
  Country: US (occurrence: US)
  Receive Date: 20121121
  Receipt Date: 20121121
  Transmission Date: 20130627
  Serious: No
  Sender: FDA-Public Use
  Company Number: US-ASTRAZENECA-2012SE84962

PATIENT
  Age: 66 Year
  Sex: Male
  Weight: 103.9 kg

DRUGS (10)
  1. NEXIUM [Suspect]
     Indication: GASTROOESOPHAGEAL REFLUX DISEASE
     Route: 048
  2. COREG [Concomitant]
  3. HYDROCODONE [Concomitant]
  4. FLEXERIL [Concomitant]
  5. DYMISTA [Concomitant]
  6. XANAX [Concomitant]
  7. XANAFLEX [Concomitant]
  8. VIT D [Concomitant]
  9. ZANTAC [Concomitant]
  10. AMOXICILIIN [Concomitant]

REACTIONS (6)
  - Gastrooesophageal reflux disease [Unknown]
  - Muscle disorder [Unknown]
  - Spinal cord disorder [Unknown]
  - Muscle spasms [Unknown]
  - Fibromyalgia [Unknown]
  - Tinnitus [Unknown]
